FAERS Safety Report 10098525 (Version 1)
Quarter: 2014Q2

REPORT INFORMATION
  Report Type: Spontaneous
  Country: US (occurrence: None)
  Receive Date: 20140422
  Receipt Date: 20140422
  Transmission Date: 20141212
  Serious: Yes (Other)
  Sender: FDA-Public Use
  Company Number: None

PATIENT
  Age: 30 Year
  Sex: Male
  Weight: 57.61 kg

DRUGS (3)
  1. PONATINIB [Suspect]
     Indication: ACUTE LYMPHOCYTIC LEUKAEMIA
     Dosage: 1 TAB QD ORAL
     Route: 048
     Dates: start: 20130211, end: 20130412
  2. PERCOCET [Concomitant]
  3. AMBIEN AS NEEDED [Concomitant]

REACTIONS (1)
  - Liver function test abnormal [None]
